FAERS Safety Report 5417765-2 (Version None)
Quarter: 2007Q3

REPORT INFORMATION
  Report Type: 
  Country: None (occurrence: None)
  Receive Date: 20070815
  Receipt Date: 20070815
  Transmission Date: 20080115
  Serious: Yes (Hospitalization)
  Sender: FDA-Public Use
  Company Number: None

PATIENT
  Sex: Female
  Weight: 77.1115 kg

DRUGS (7)
  1. HUMALOG [Suspect]
     Indication: DIABETES MELLITUS
     Dosage: PRIOR TO ADMISSION
  2. NOVOLIN 50/50 [Suspect]
     Indication: DIABETES MELLITUS
     Dosage: PRIOR TO ADMISSION
  3. NOVOLOG [Suspect]
     Indication: DIABETES MELLITUS
     Dosage: PRIOR TO ADMISSION
  4. ACTOS [Concomitant]
  5. HYDROCHLOROTHIAZIDE [Concomitant]
  6. SYNTHROID [Concomitant]
  7. METOPROLOL SUCCINATE [Concomitant]

REACTIONS (3)
  - CONFUSIONAL STATE [None]
  - MENTAL STATUS CHANGES [None]
  - UNRESPONSIVE TO STIMULI [None]
